FAERS Safety Report 7216880-0 (Version None)
Quarter: 2010Q4

REPORT INFORMATION
  Report Type: 
  Country: None (occurrence: None)
  Receive Date: 20101229
  Receipt Date: 20101215
  Transmission Date: 20110411
  Serious: Yes (Other)
  Sender: FDA-Public Use
  Company Number: 2010SP065190

PATIENT
  Age: 70 Year
  Sex: Male
  Weight: 75 kg

DRUGS (5)
  1. REMERGIL (MIRTAZAPINE /01293201/) [Suspect]
     Indication: DEPRESSION
     Dosage: 30 MG;QD;PO
     Route: 048
     Dates: start: 20101001, end: 20101219
  2. AMILORID (MODURETIC) [Suspect]
     Indication: HYPERTENSION
     Dosage: QD QOD
     Dates: start: 20101001, end: 20101213
  3. AMILORID (MODURETIC) [Suspect]
     Indication: HYPERTENSION
     Dosage: QD QOD
     Dates: start: 20101213
  4. ETORICOXIB [Concomitant]
  5. TAMSULOSIN HCL [Concomitant]

REACTIONS (4)
  - ASTHENIA [None]
  - BLOOD PRESSURE INCREASED [None]
  - DISTURBANCE IN ATTENTION [None]
  - DIZZINESS [None]
